FAERS Safety Report 9579590 (Version 1)
Quarter: 2013Q4

REPORT INFORMATION
  Report Type: Spontaneous
  Country: GR (occurrence: GR)
  Receive Date: 20131002
  Receipt Date: 20131002
  Transmission Date: 20140711
  Serious: Yes (Other)
  Sender: FDA-Public Use
  Company Number: GR-ROCHE-1280998

PATIENT
  Age: 63 Year
  Sex: Male

DRUGS (4)
  1. XELODA [Suspect]
     Indication: COLON CANCER
     Dosage: DOSE-3 TABS.
     Route: 065
     Dates: start: 20130424
  2. PHENYTOIN [Concomitant]
  3. PHENOBARBITAL/PHENYTOIN SODIUM [Concomitant]
     Route: 065
     Dates: end: 201309
  4. CARBAMAZEPINE [Concomitant]
     Route: 065
     Dates: end: 201309

REACTIONS (9)
  - Gait disturbance [Not Recovered/Not Resolved]
  - Nystagmus [Not Recovered/Not Resolved]
  - Tremor [Not Recovered/Not Resolved]
  - Hypoaesthesia [Not Recovered/Not Resolved]
  - Dysarthria [Not Recovered/Not Resolved]
  - Dyskinesia [Not Recovered/Not Resolved]
  - Head titubation [Not Recovered/Not Resolved]
  - Hyperkinesia [Not Recovered/Not Resolved]
  - Palmar-plantar erythrodysaesthesia syndrome [Not Recovered/Not Resolved]
